FAERS Safety Report 4984890-X (Version None)
Quarter: 2006Q2

REPORT INFORMATION
  Report Type: 
  Country: None (occurrence: None)
  Receive Date: 20060427
  Receipt Date: 20051118
  Transmission Date: 20061013
  Serious: Yes (Hospitalization)
  Sender: FDA-Public Use
  Company Number: US-BRISTOL-MYERS SQUIBB COMPANY-13187844

PATIENT
  Age: 64 Year
  Sex: Female

DRUGS (8)
  1. GLIMEPIRIDE [Suspect]
     Indication: DIABETES MELLITUS NON-INSULIN-DEPENDENT
     Route: 048
     Dates: start: 20050525
  2. METFORMIN HYDROCHLORIDE [Suspect]
     Indication: DIABETES MELLITUS NON-INSULIN-DEPENDENT
     Route: 048
     Dates: start: 20011010
  3. TARKA [Suspect]
     Dates: start: 20051017, end: 20051108
  4. ZOCOR [Concomitant]
     Dates: start: 20050322
  5. METHOTREXATE [Concomitant]
     Dates: start: 20050823
  6. DILANTIN [Concomitant]
     Dates: start: 20011010
  7. FUROSEMIDE [Concomitant]
     Dates: start: 20011010
  8. IMDUR [Concomitant]
     Dates: start: 20011010

REACTIONS (6)
  - ACUTE MYOCARDIAL INFARCTION [None]
  - ANGIONEUROTIC OEDEMA [None]
  - ATELECTASIS [None]
  - CARDIOMEGALY [None]
  - LUNG INFILTRATION [None]
  - SCAR [None]
